FAERS Safety Report 9851049 (Version 1)
Quarter: 2014Q1

REPORT INFORMATION
  Report Type: Spontaneous
  Country: US (occurrence: US)
  Receive Date: 20140128
  Receipt Date: 20140128
  Transmission Date: 20141002
  Serious: No
  Sender: FDA-Public Use
  Company Number: US-DYAX CORP.-2013DX000176

PATIENT
  Age: 16 Year
  Sex: Female
  Weight: 49.94 kg

DRUGS (8)
  1. KALBITOR [Suspect]
     Indication: HEREDITARY ANGIOEDEMA
     Route: 058
     Dates: start: 20130916, end: 20130916
  2. KALBITOR [Suspect]
     Route: 058
     Dates: start: 201303
  3. GABAPENTIN [Concomitant]
     Indication: PAIN
     Route: 048
  4. AYGESTIN [Concomitant]
     Indication: ORAL CONTRACEPTION
     Route: 048
  5. ELMIRON [Concomitant]
     Indication: CYSTITIS INTERSTITIAL
     Route: 048
  6. ELAVIL [Concomitant]
     Indication: DEPRESSION
     Route: 048
  7. LUPRON DEPOT [Concomitant]
     Indication: ENDOMETRIOSIS
     Route: 030
  8. OXYCODONE [Concomitant]
     Indication: PAIN
     Route: 048

REACTIONS (3)
  - Erythema [Recovered/Resolved]
  - Nausea [Recovered/Resolved]
  - Off label use [Unknown]
